FAERS Safety Report 16525917 (Version 3)
Quarter: 2020Q3

REPORT INFORMATION
  Report Type: Report from Study
  Country: JP (occurrence: JP)
  Receive Date: 20190703
  Receipt Date: 20191127
  Transmission Date: 20201105
  Serious: Yes (Life-Threatening, Other)
  Sender: FDA-Public Use
  Company Number: JP-ROCHE-2264748

PATIENT
  Age: 71 Year
  Sex: Male
  Weight: 66.5 kg

DRUGS (27)
  1. BENDAMUSTINE [Suspect]
     Active Substance: BENDAMUSTINE
     Dosage: CYCLE 1 DAY 3
     Route: 042
     Dates: start: 20181221
  2. POLATUZUMAB VEDOTIN. [Suspect]
     Active Substance: POLATUZUMAB VEDOTIN
     Indication: DIFFUSE LARGE B-CELL LYMPHOMA
     Dosage: CYCLE 1 DAY 2.
     Route: 042
     Dates: start: 20181220
  3. RITUXIMAB. [Suspect]
     Active Substance: RITUXIMAB
     Route: 042
     Dates: start: 20190130
  4. OPSO [Concomitant]
     Active Substance: MORPHINE HYDROCHLORIDE
     Indication: TUMOUR PAIN
     Dosage: AT THE PAIN
     Route: 048
     Dates: start: 20190206
  5. BENDAMUSTINE [Suspect]
     Active Substance: BENDAMUSTINE
     Route: 042
     Dates: start: 20190130
  6. BENDAMUSTINE [Suspect]
     Active Substance: BENDAMUSTINE
     Dosage: CYCLE 1 DAY 3
     Route: 042
     Dates: start: 20190131
  7. HUMULIN R [Concomitant]
     Active Substance: INSULIN HUMAN
     Indication: DIABETES MELLITUS
     Dosage: DOSE INTERVAL UNCERTAINTY
     Route: 041
     Dates: start: 20190204, end: 20190207
  8. PREDONINE [Suspect]
     Active Substance: PREDNISOLONE
     Indication: TUMOUR PAIN
     Route: 041
     Dates: start: 20190125
  9. VALSARTAN. [Concomitant]
     Active Substance: VALSARTAN
     Indication: HYPERTENSION
     Dosage: BEGINNING OF DOSAGE DAY AFTER BREAKFAST: INVESTIGATIONAL AGENT BEFORE ?ADMINISTRATION
     Route: 048
     Dates: end: 20190209
  10. BAKTAR [Concomitant]
     Active Substance: SULFAMETHOXAZOLE\TRIMETHOPRIM
     Indication: INFECTION PROPHYLAXIS
     Dosage: BEGINNING OF DOSAGE DAY AFTER BREAKFAST: INVESTIGATIONAL AGENT BEFORE ?ADMINISTRATION
     Route: 048
  11. HALIZON [Concomitant]
     Active Substance: AMPHOTERICIN B
     Indication: ORAL CANDIDIASIS
     Dosage: AFTER EVERY MEAL
     Route: 048
     Dates: start: 20190206, end: 20190213
  12. POLATUZUMAB VEDOTIN. [Suspect]
     Active Substance: POLATUZUMAB VEDOTIN
     Route: 042
     Dates: start: 20190109
  13. NAFTOPIDIL [Concomitant]
     Active Substance: NAFTOPIDIL
     Indication: DYSURIA
     Dosage: BEGINNING OF DOSAGE DAY AFTER BREAKFAST: INVESTIGATIONAL AGENT BEFORE ?ADMINISTRATION
     Route: 048
  14. POLATUZUMAB VEDOTIN. [Suspect]
     Active Substance: POLATUZUMAB VEDOTIN
     Route: 042
     Dates: start: 20190130
  15. RITUXIMAB. [Suspect]
     Active Substance: RITUXIMAB
     Indication: DIFFUSE LARGE B-CELL LYMPHOMA
     Dosage: SIX CYCLES
     Route: 042
     Dates: start: 20181219
  16. BENDAMUSTINE [Suspect]
     Active Substance: BENDAMUSTINE
     Indication: DIFFUSE LARGE B-CELL LYMPHOMA
     Dosage: CYCLE 1 DAY 2
     Route: 042
     Dates: start: 20181220
  17. AMLODIPINE [Concomitant]
     Active Substance: AMLODIPINE BESYLATE
     Indication: HYPERTENSION
     Dosage: BEGINNING OF DOSAGE DAY AFTER BREAKFAST: INVESTIGATIONAL AGENT BEFORE ?ADMINISTRATION
     Route: 048
  18. LAC?B [Concomitant]
     Active Substance: BIFIDOBACTERIUM SPP.
     Indication: PROPHYLAXIS AGAINST DIARRHOEA
     Dosage: AFTER EVERY MEAL
     Route: 048
     Dates: start: 20190128
  19. FENTANYL CITRATE. [Concomitant]
     Active Substance: FENTANYL CITRATE
     Indication: TUMOUR PAIN
     Route: 062
     Dates: start: 20190108
  20. HEPARIN SODIUM. [Concomitant]
     Active Substance: HEPARIN SODIUM
     Indication: THROMBOSIS PROPHYLAXIS
     Dosage: 1000?2000 UNITS
     Route: 041
     Dates: start: 20190127, end: 20190207
  21. RITUXIMAB. [Suspect]
     Active Substance: RITUXIMAB
     Route: 042
     Dates: start: 20190109
  22. BENDAMUSTINE [Suspect]
     Active Substance: BENDAMUSTINE
     Route: 042
     Dates: start: 20190110
  23. ESOMEPRAZOLE. [Concomitant]
     Active Substance: ESOMEPRAZOLE MAGNESIUM
     Indication: GASTRIC ULCER
     Dosage: BEGINNING OF DOSAGE DAY AFTER BREAKFAST: INVESTIGATIONAL AGENT BEFORE ?ADMINISTRATION
     Route: 048
  24. DENOSINE [GANCICLOVIR] [Concomitant]
     Active Substance: GANCICLOVIR
     Indication: CYTOMEGALOVIRUS INFECTION
     Route: 041
     Dates: start: 20190201, end: 20190207
  25. BENDAMUSTINE [Suspect]
     Active Substance: BENDAMUSTINE
     Route: 042
     Dates: start: 20190109
  26. JANUVIA [Concomitant]
     Active Substance: SITAGLIPTIN PHOSPHATE
     Indication: DIABETES MELLITUS
     Dosage: BEGINNING OF DOSAGE DAY AFTER BREAKFAST: INVESTIGATIONAL AGENT BEFORE ?ADMINISTRATION
     Route: 048
  27. ACICLOVIR [Concomitant]
     Active Substance: ACYCLOVIR
     Indication: INFECTION PROPHYLAXIS
     Dosage: AFTER THE BREAKFAST
     Route: 048
     Dates: start: 20181228

REACTIONS (3)
  - Neutrophil count decreased [Recovered/Resolved]
  - Klebsiella sepsis [Recovered/Resolved]
  - White blood cell count decreased [Recovered/Resolved]

NARRATIVE: CASE EVENT DATE: 20190207
